FAERS Safety Report 10089575 (Version 1)
Quarter: 2014Q2

REPORT INFORMATION
  Report Type: Spontaneous
  Country: DE (occurrence: DE)
  Receive Date: 20140421
  Receipt Date: 20140421
  Transmission Date: 20141212
  Serious: Yes (Other)
  Sender: FDA-Public Use
  Company Number: DE-PFIZER INC-2014107810

PATIENT
  Age: 37 Year
  Sex: Female

DRUGS (1)
  1. ZELDOX [Suspect]
     Dosage: 160 MG, DAILY

REACTIONS (2)
  - Psychotic disorder [Unknown]
  - Drug level decreased [Unknown]
